FAERS Safety Report 7507654-1 (Version None)
Quarter: 2011Q2

REPORT INFORMATION
  Report Type: 
  Country: None (occurrence: None)
  Receive Date: 20110527
  Receipt Date: 20110519
  Transmission Date: 20111010
  Serious: Yes (Hospitalization)
  Sender: FDA-Public Use
  Company Number: US-BIOGENIDEC-2010BI037901

PATIENT
  Age: 48 Year
  Sex: Female

DRUGS (2)
  1. TYSABRI [Suspect]
     Indication: MULTIPLE SCLEROSIS
     Route: 042
     Dates: start: 20100302
  2. LYRICA [Concomitant]
     Indication: FIBROMYALGIA

REACTIONS (10)
  - FLATULENCE [None]
  - ABDOMINAL DISTENSION [None]
  - MEGACOLON [None]
  - DIARRHOEA [None]
  - MOBILITY DECREASED [None]
  - ABDOMINAL PAIN [None]
  - FIBROMYALGIA [None]
  - NERVE COMPRESSION [None]
  - BLADDER DISORDER [None]
  - INTESTINAL OBSTRUCTION [None]
